FAERS Safety Report 14354230 (Version 2)
Quarter: 2018Q1

REPORT INFORMATION
  Report Type: Spontaneous
  Country: BE (occurrence: BE)
  Receive Date: 20180105
  Receipt Date: 20180212
  Transmission Date: 20180509
  Serious: Yes (Life-Threatening, Hospitalization)
  Sender: FDA-Public Use
  Company Number: BE-ACTELION-A-CH2018-165332

PATIENT
  Age: 13 Year
  Sex: Female
  Weight: 54 kg

DRUGS (1)
  1. VELETRI [Suspect]
     Active Substance: EPOPROSTENOL
     Indication: PULMONARY HYPERTENSION
     Dosage: 30 NG/KG, PER MIN
     Route: 042
     Dates: start: 20160913, end: 20170728

REACTIONS (4)
  - Right ventricular failure [Recovered/Resolved]
  - Hypotension [Recovered/Resolved]
  - Concomitant disease progression [Recovered/Resolved]
  - Oliguria [Recovered/Resolved]

NARRATIVE: CASE EVENT DATE: 201706
